FAERS Safety Report 7820159 (Version 2)
Quarter: 2014Q1

REPORT INFORMATION
  Report Type: Spontaneous
  Country: US (occurrence: US)
  Receive Date: 20110221
  Receipt Date: 20140303
  Transmission Date: 20141002
  Serious: Yes (Other)
  Sender: FDA-Public Use
  Company Number: US-ROCHE-736012

PATIENT
  Sex: Female
  Weight: 97.1 kg

DRUGS (3)
  1. ACCUTANE [Suspect]
     Indication: ACNE
     Route: 065
  2. ACCUTANE [Suspect]
     Route: 065
     Dates: start: 19911001, end: 199205
  3. ACCUTANE [Suspect]
     Route: 065

REACTIONS (8)
  - Crohn^s disease [Unknown]
  - Colitis ulcerative [Unknown]
  - Gastrointestinal injury [Unknown]
  - Inflammatory bowel disease [Unknown]
  - Rectal haemorrhage [Unknown]
  - Diverticulum [Unknown]
  - Gastrooesophageal reflux disease [Unknown]
  - Depression [Unknown]
